FAERS Safety Report 26000205 (Version 1)
Quarter: 2025Q4

REPORT INFORMATION
  Report Type: Spontaneous
  Country: AI (occurrence: None)
  Receive Date: 20251105
  Receipt Date: 20251105
  Transmission Date: 20260117
  Serious: Yes (Life-Threatening, Hospitalization, Other)
  Sender: NATCO PHARMA
  Company Number: AI-NATCOUSA-2025-NATCOUSA-000354

PATIENT
  Age: 48 Year
  Sex: Female

DRUGS (1)
  1. NITROGLYCERIN [Suspect]
     Active Substance: NITROGLYCERIN
     Indication: Chest pain
     Route: 022

REACTIONS (4)
  - Coronary artery occlusion [Recovered/Resolved]
  - Myocardial bridging [Unknown]
  - Condition aggravated [Unknown]
  - Off label use [Unknown]
